FAERS Safety Report 16764512 (Version 8)
Quarter: 2021Q3

REPORT INFORMATION
  Report Type: Report from Study
  Country: JP (occurrence: JP)
  Receive Date: 20190902
  Receipt Date: 20210826
  Transmission Date: 20211014
  Serious: Yes (Hospitalization, Other)
  Sender: FDA-Public Use
  Company Number: JP-BRISTOL-MYERS SQUIBB COMPANY-BMS-2018-062713

PATIENT
  Age: 65 Year
  Sex: Male
  Weight: 58 kg

DRUGS (58)
  1. CALONAL [Concomitant]
     Active Substance: ACETAMINOPHEN
     Indication: PEMPHIGOID
     Dosage: UNK
     Route: 065
  2. BIO?THREE [Concomitant]
     Active Substance: HERBALS
     Indication: DYSBIOSIS
     Dosage: 1 DF, BID
     Route: 048
  3. BIO?THREE [Concomitant]
     Active Substance: HERBALS
     Dosage: 1TABLET/DOSE
     Route: 048
  4. LYRICA [Concomitant]
     Active Substance: PREGABALIN
     Indication: CANCER PAIN
     Dosage: 75 MG, Q12H
     Route: 048
     Dates: start: 2018
  5. SHAKUYAKUKANZOTO [Concomitant]
     Active Substance: HERBALS
     Indication: MUSCLE SPASMS
     Dosage: 2.5 GRAM, Q12H
     Route: 048
     Dates: start: 20190904
  6. PLACEBO [Suspect]
     Active Substance: UNSPECIFIED INGREDIENT
     Indication: NON-SMALL CELL LUNG CANCER
     Dosage: 360 MG, UNK
     Route: 065
     Dates: start: 20180525
  7. PACLITAXEL. [Suspect]
     Active Substance: PACLITAXEL
     Indication: LUNG ADENOCARCINOMA
  8. CARVEDILOL. [Concomitant]
     Active Substance: CARVEDILOL
     Indication: HYPERTENSION
     Dosage: 5 MG, EVERYDAY
     Route: 048
     Dates: start: 2014
  9. ROSUVASTATIN [ROSUVASTATIN CALCIUM] [Concomitant]
     Active Substance: ROSUVASTATIN CALCIUM
     Indication: HYPERCHOLESTEROLAEMIA
     Dosage: 5 MG, QD
     Route: 048
     Dates: start: 20180616
  10. BIO?THREE [Concomitant]
     Active Substance: HERBALS
     Indication: GASTROINTESTINAL DISORDER
     Dosage: 1 TAB, BID
     Route: 048
  11. ZYPREXA [Concomitant]
     Active Substance: OLANZAPINE
     Indication: NAUSEA
  12. OXINORM [OXYCODONE HYDROCHLORIDE] [Concomitant]
     Active Substance: OXYCODONE HYDROCHLORIDE
     Indication: CANCER PAIN
     Dosage: 5 MG, PRN
     Route: 048
     Dates: start: 20180424
  13. FAMOTIDINE. [Concomitant]
     Active Substance: FAMOTIDINE
     Indication: PROPHYLAXIS AGAINST GASTROINTESTINAL ULCER
     Dosage: 20 MG, EVERYDAY
     Route: 048
     Dates: start: 20180727
  14. ROSUVASTATIN. [Concomitant]
     Active Substance: ROSUVASTATIN
     Indication: HYPERCHOLESTEROLAEMIA
     Dosage: 5 MG, EVERYDAY
     Route: 048
     Dates: start: 20180616
  15. LOCOID [Concomitant]
     Active Substance: HYDROCORTISONE BUTYRATE
     Indication: SEBORRHOEIC DERMATITIS
     Dosage: UNK
     Route: 061
     Dates: start: 20200403
  16. KAKKONTO [CINNAMOMUM CASSIA BARK;EPHEDRA SPP. HERB;GLYCYRRHIZA SPP. RO [Concomitant]
     Active Substance: HERBALS
     Indication: PROPHYLAXIS
     Dosage: 2.5 GRAM
     Route: 048
     Dates: start: 20191122
  17. BLINDED NIVOLUMAB [Suspect]
     Active Substance: NIVOLUMAB
     Dosage: 360MG/BODY OR PLACEBO, Q3W
     Route: 041
     Dates: start: 20181203, end: 20200828
  18. PLACEBO [Suspect]
     Active Substance: UNSPECIFIED INGREDIENT
     Dosage: 360MG/BODY OR PLACEBO, Q3W
     Route: 041
     Dates: start: 20181203, end: 20200828
  19. CARBOPLATIN. [Suspect]
     Active Substance: CARBOPLATIN
     Indication: NON-SMALL CELL LUNG CANCER
     Dosage: 475.8 MG, UNK
     Route: 042
     Dates: start: 20180525
  20. BEVACIZUMAB. [Suspect]
     Active Substance: BEVACIZUMAB
     Indication: LUNG ADENOCARCINOMA
     Dosage: 912 MG, Q3WK
     Route: 041
     Dates: start: 20180525
  21. BAYASPIRIN [Concomitant]
     Active Substance: ASPIRIN
     Indication: THROMBOSIS PROPHYLAXIS
     Dosage: 100 MG, EVERYDAY
     Route: 048
     Dates: start: 2014
  22. MOSAPRIDE CITRATE [Concomitant]
     Active Substance: MOSAPRIDE CITRATE
     Indication: CONSTIPATION
     Dosage: 5 MG, TID
     Route: 048
     Dates: start: 20180515
  23. SMILE 40 EX [Concomitant]
     Active Substance: CHLORPHENIRAMINE\NEOSTIGMINE METILSULFATE\POTASSIUM\TETRAHYDROZOLINE\VITAMINS
     Indication: ASTHENOPIA
     Dosage: APPROPRIATE DOSAGE, PRN
     Route: 047
     Dates: start: 2008
  24. SUPROFEN [Concomitant]
     Active Substance: SUPROFEN
     Indication: ECZEMA
     Dosage: ADEQUATE DOSE AS NEEDED
     Route: 003
     Dates: start: 20181015
  25. HIRUDOID [Concomitant]
     Active Substance: GLYCOSAMINOGLYCANS
     Indication: DRY SKIN
     Dosage: UNK
     Route: 061
     Dates: start: 20191011
  26. PACLITAXEL. [Suspect]
     Active Substance: PACLITAXEL
     Indication: NON-SMALL CELL LUNG CANCER
     Dosage: 337.4 MG, UNK
     Route: 041
     Dates: start: 20180525
  27. LANSOPRAZOLE. [Concomitant]
     Active Substance: LANSOPRAZOLE
     Indication: PROPHYLAXIS AGAINST GASTROINTESTINAL ULCER
     Dosage: 15 MG, QD
     Route: 048
     Dates: start: 2014
  28. LANSOPRAZOLE. [Concomitant]
     Active Substance: LANSOPRAZOLE
     Indication: PROPHYLAXIS AGAINST GASTROINTESTINAL ULCER
     Dosage: 15 MG, EVERYDAY
     Route: 048
     Dates: start: 20181110
  29. LYRICA [Concomitant]
     Active Substance: PREGABALIN
     Indication: CANCER PAIN
     Dosage: 75 MG, BID
     Route: 048
     Dates: start: 2018
  30. XYZAL [Concomitant]
     Active Substance: LEVOCETIRIZINE DIHYDROCHLORIDE
     Indication: URTICARIA
     Dosage: 2.5 MG, AS NEEDED
     Dates: start: 20200830
  31. CALONAL [Concomitant]
     Active Substance: ACETAMINOPHEN
     Indication: CANCER PAIN
     Dosage: 500 MG, Q12H
     Route: 048
     Dates: start: 20180424
  32. MAGMITT [Concomitant]
     Active Substance: MAGNESIUM OXIDE
     Indication: CONSTIPATION
     Dosage: 330 MG PER DOSE, PRN
     Route: 048
     Dates: start: 20180525
  33. MAGNESIUM OXIDE. [Concomitant]
     Active Substance: MAGNESIUM OXIDE
     Indication: HYPOMAGNESAEMIA
     Dosage: 80 MG, EVERYDAY
     Route: 048
     Dates: start: 20180928
  34. VIBRAMYCIN [Concomitant]
     Active Substance: DOXYCYCLINE
     Indication: PEMPHIGOID
     Dosage: 100 MILLIGRAM, Q12H
     Route: 048
     Dates: start: 20200403
  35. BLINDED NIVOLUMAB [Suspect]
     Active Substance: NIVOLUMAB
     Indication: NON-SMALL CELL LUNG CANCER
     Dosage: 360 MG, UNK
     Route: 065
     Dates: start: 20180525
  36. BLINDED NIVOLUMAB [Suspect]
     Active Substance: NIVOLUMAB
     Indication: LUNG ADENOCARCINOMA
     Dosage: 360MG/BODY OR PLACEBO, Q3W
     Route: 041
     Dates: start: 20180525, end: 20180816
  37. PLACEBO [Suspect]
     Active Substance: UNSPECIFIED INGREDIENT
     Indication: LUNG ADENOCARCINOMA
     Dosage: 360MG/BODY OR PLACEBO, Q3W
     Route: 041
     Dates: start: 20180525, end: 20180816
  38. AMITIZA [Concomitant]
     Active Substance: LUBIPROSTONE
     Indication: CONSTIPATION
     Dosage: 24 ?G, PRN
     Route: 048
     Dates: start: 20180424
  39. CORTRIL [Concomitant]
     Active Substance: HYDROCORTISONE
     Indication: HYPOPHYSITIS
     Dosage: 10 MG, QD
     Route: 048
     Dates: start: 20180728
  40. URIADEC [Concomitant]
     Active Substance: TOPIROXOSTAT
     Indication: HYPERURICAEMIA
     Dosage: 40 MG, Q12H
     Route: 048
     Dates: start: 20181203
  41. BESOFTEN [Concomitant]
     Active Substance: PENTOSAN POLYSULFATE SODIUM
     Indication: ECZEMA
     Dosage: ADEQUATE DOSE AS NEEDED
     Route: 003
     Dates: start: 20181015
  42. DIFLUPREDNATE [Concomitant]
     Active Substance: DIFLUPREDNATE
     Indication: ECZEMA
     Dosage: ADEQUATE DOSE AS NEEDED
     Route: 003
     Dates: start: 20181208
  43. CARBOPLATIN. [Suspect]
     Active Substance: CARBOPLATIN
     Indication: LUNG ADENOCARCINOMA
  44. BEVACIZUMAB. [Suspect]
     Active Substance: BEVACIZUMAB
     Indication: NON-SMALL CELL LUNG CANCER
     Dosage: 982.5 MG, UNK
     Route: 042
     Dates: start: 20180525
  45. NIFEDIPINE. [Concomitant]
     Active Substance: NIFEDIPINE
     Indication: HYPERTENSION
     Dosage: 20 MG, BID
     Route: 048
     Dates: start: 2014
  46. NIFEDIPINE. [Concomitant]
     Active Substance: NIFEDIPINE
     Dosage: 20 MG, Q12H
     Route: 048
     Dates: start: 20180928
  47. NICORANDIL [Concomitant]
     Active Substance: NICORANDIL
     Indication: ANGINA PECTORIS
     Dosage: 5 MG, Q12H
     Route: 048
     Dates: start: 2014
  48. OXYCODONE [OXYCODONE HYDROCHLORIDE] [Concomitant]
     Active Substance: OXYCODONE HYDROCHLORIDE
     Indication: CANCER PAIN
     Dosage: 20 MG, BID
     Route: 048
     Dates: start: 20180603
  49. NAUZELIN [Concomitant]
     Active Substance: DOMPERIDONE
     Indication: NAUSEA
     Dosage: 30 MG, QD
     Route: 048
     Dates: start: 20180727
  50. BIO?THREE [Concomitant]
     Active Substance: HERBALS
     Dosage: 1TABLET/DOSE
     Route: 048
  51. LIDOMEX [Concomitant]
     Active Substance: PREDNISOLONE VALERATE ACETATE
     Indication: PRURITUS
     Dosage: UNK, PRN
     Route: 003
  52. LIDOMEX [Concomitant]
     Active Substance: PREDNISOLONE VALERATE ACETATE
     Dosage: AS NECESSARY
     Route: 003
     Dates: start: 20200522
  53. ZYPREXA [Concomitant]
     Active Substance: OLANZAPINE
     Indication: NAUSEA
     Dosage: 2.5 MG, PRN
     Route: 048
     Dates: start: 20180616
  54. METOCLOPRAMIDE. [Concomitant]
     Active Substance: METOCLOPRAMIDE
     Indication: NAUSEA
     Dosage: 330 MG, PRN
     Route: 048
     Dates: start: 20180526
  55. LEVOFLOXACIN. [Concomitant]
     Active Substance: LEVOFLOXACIN
     Indication: INFECTION PROPHYLAXIS
     Dosage: 250 MG, QD
     Route: 048
     Dates: start: 20180804
  56. BIO?THREE [Concomitant]
     Active Substance: HERBALS
     Dosage: 1TABLET/DOSE
     Route: 048
  57. NIZORAL [Concomitant]
     Active Substance: KETOCONAZOLE
     Indication: TINEA INFECTION
     Dosage: UNK
     Route: 061
     Dates: start: 20200424
  58. CARBOCISTEINE [Concomitant]
     Active Substance: CARBOCYSTEINE
     Indication: PROPHYLAXIS
     Dosage: 500 MILLIGRAM, PRN
     Route: 048
     Dates: start: 20200106

REACTIONS (7)
  - Febrile neutropenia [Recovering/Resolving]
  - Adrenocorticotropic hormone deficiency [Recovering/Resolving]
  - Pyrexia [Recovering/Resolving]
  - Pemphigoid [Recovering/Resolving]
  - Interstitial lung disease [Recovered/Resolved]
  - Acute kidney injury [Recovered/Resolved]
  - Colitis [Recovering/Resolving]

NARRATIVE: CASE EVENT DATE: 20180629
